FAERS Safety Report 10964339 (Version 2)
Quarter: 2015Q2

REPORT INFORMATION
  Report Type: Spontaneous
  Country: US (occurrence: US)
  Receive Date: 20150329
  Receipt Date: 20150524
  Transmission Date: 20150821
  Serious: No
  Sender: FDA-Public Use
  Company Number: US-JNJFOC-20130808563

PATIENT
  Sex: Male
  Weight: 76.2 kg

DRUGS (8)
  1. DURAGESIC [Suspect]
     Active Substance: FENTANYL
     Indication: FRACTURE
     Route: 062
     Dates: start: 2013
  2. DURAGESIC [Suspect]
     Active Substance: FENTANYL
     Indication: FRACTURE
     Route: 062
     Dates: start: 2005, end: 201301
  3. NORVASC [Concomitant]
     Active Substance: AMLODIPINE BESYLATE
     Indication: BLOOD PRESSURE
     Route: 048
     Dates: start: 2013
  4. BABY ASPIRIN [Concomitant]
     Active Substance: ASPIRIN
     Indication: BLOOD PRESSURE
     Route: 048
     Dates: start: 2013
  5. FENTANYL TRANSDERMAL SYSTEM [Suspect]
     Active Substance: FENTANYL
     Indication: FRACTURE
     Route: 062
     Dates: start: 201301, end: 201303
  6. SPIRIVA [Concomitant]
     Active Substance: TIOTROPIUM BROMIDE MONOHYDRATE
     Indication: RESPIRATORY DISORDER
     Route: 055
     Dates: start: 2013
  7. METHIMAZOLE. [Concomitant]
     Active Substance: METHIMAZOLE
     Indication: BASEDOW^S DISEASE
     Route: 048
     Dates: start: 2013
  8. ZOLOFT [Concomitant]
     Active Substance: SERTRALINE HYDROCHLORIDE
     Indication: SLEEP DISORDER
     Route: 048
     Dates: start: 2013

REACTIONS (2)
  - Application site reaction [Recovered/Resolved]
  - Product quality issue [Unknown]

NARRATIVE: CASE EVENT DATE: 2013
